FAERS Safety Report 24270305 (Version 1)
Quarter: 2024Q3

REPORT INFORMATION
  Report Type: Spontaneous
  Country: US (occurrence: US)
  Receive Date: 20240830
  Receipt Date: 20240830
  Transmission Date: 20241016
  Serious: No
  Sender: GE HEALTHCARE
  Company Number: US-GE HEALTHCARE-2024CSU009960

PATIENT

DRUGS (1)
  1. DATSCAN [Suspect]
     Active Substance: IODINE\IOFLUPANE I-123
     Indication: Diagnostic procedure
     Dosage: UNK UNK, TOTAL
     Route: 065
     Dates: start: 2021, end: 2021

REACTIONS (1)
  - Dizziness [Unknown]

NARRATIVE: CASE EVENT DATE: 20210101
